FAERS Safety Report 18686772 (Version 2)
Quarter: 2021Q1

REPORT INFORMATION
  Report Type: Spontaneous
  Country: US (occurrence: US)
  Receive Date: 20201230
  Receipt Date: 20210107
  Transmission Date: 20210419
  Serious: No
  Sender: FDA-Public Use
  Company Number: US-GLAXOSMITHKLINE-US2020AMR256905

PATIENT
  Age: 84 Year
  Sex: Female

DRUGS (2)
  1. ALBUTEROL SULFATE. [Suspect]
     Active Substance: ALBUTEROL SULFATE
     Indication: ASTHMA
     Dosage: UNK PUFF AS NEEDED
  2. NUCALA [Suspect]
     Active Substance: MEPOLIZUMAB
     Indication: PRODUCT USED FOR UNKNOWN INDICATION
     Dosage: UNK

REACTIONS (12)
  - Hypoacusis [Unknown]
  - Cough [Unknown]
  - Nasopharyngitis [Unknown]
  - Rhinorrhoea [Unknown]
  - Influenza [Unknown]
  - Memory impairment [Unknown]
  - Visual impairment [Unknown]
  - Ingrowing nail [Unknown]
  - Inappropriate schedule of product administration [Unknown]
  - Fear [Unknown]
  - Dyspnoea [Unknown]
  - Illness [Unknown]

NARRATIVE: CASE EVENT DATE: 202012
